FAERS Safety Report 4929602-0 (Version None)
Quarter: 2006Q1

REPORT INFORMATION
  Report Type: 
  Country: None (occurrence: None)
  Receive Date: 20060224
  Receipt Date: 20060213
  Transmission Date: 20060701
  Serious: Yes (Hospitalization, Other)
  Sender: FDA-Public Use
  Company Number: 2005170354

PATIENT
  Sex: Male
  Weight: 74.8435 kg

DRUGS (4)
  1. LIPITOR [Suspect]
     Indication: BLOOD CHOLESTEROL INCREASED
     Dosage: 10 MG (10 MG, 1 IN 1 D) ORAL
     Route: 048
     Dates: start: 19900101
  2. ACETYLSALICYLIC ACID SRT [Concomitant]
  3. PRINIVIL [Concomitant]
  4. LOPRESSOR [Concomitant]

REACTIONS (31)
  - ABASIA [None]
  - ANGINA PECTORIS [None]
  - ANGINA UNSTABLE [None]
  - ARTERIAL REPAIR [None]
  - ATROPHY [None]
  - BLOOD CREATININE INCREASED [None]
  - BLOOD UREA INCREASED [None]
  - CARDIAC STRESS TEST ABNORMAL [None]
  - CORONARY ARTERY DISEASE [None]
  - CORONARY ARTERY OCCLUSION [None]
  - CORONARY ARTERY STENOSIS [None]
  - DELIRIUM [None]
  - DYSPNOEA [None]
  - DYSTROPHIC CALCIFICATION [None]
  - FATIGUE [None]
  - HAEMATOCRIT DECREASED [None]
  - HAEMOGLOBIN DECREASED [None]
  - HIGH DENSITY LIPOPROTEIN INCREASED [None]
  - HYPERLIPIDAEMIA [None]
  - HYPERTENSION [None]
  - HYPERTENSIVE HEART DISEASE [None]
  - MYOCARDIAL INFARCTION [None]
  - OESOPHAGEAL STENOSIS [None]
  - OPERATIVE HAEMORRHAGE [None]
  - POST PROCEDURAL COMPLICATION [None]
  - POSTOPERATIVE ADHESION [None]
  - SCAR [None]
  - VASCULAR BYPASS GRAFT [None]
  - VASCULAR GRAFT COMPLICATION [None]
  - VENTRICULAR FIBRILLATION [None]
  - VENTRICULAR HYPERTROPHY [None]
